FAERS Safety Report 16530795 (Version 5)
Quarter: 2019Q3

REPORT INFORMATION
  Report Type: Spontaneous
  Country: US (occurrence: US)
  Receive Date: 20190704
  Receipt Date: 20190809
  Transmission Date: 20191004
  Serious: Yes (Other)
  Sender: FDA-Public Use
  Company Number: US-ROCHE-2344394

PATIENT
  Age: 72 Year
  Sex: Male

DRUGS (1)
  1. OCREVUS [Suspect]
     Active Substance: OCRELIZUMAB
     Indication: PRODUCT USED FOR UNKNOWN INDICATION
     Dosage: SUBSEQUENT DOSE RECEIVED ON 18/MAR/2018
     Route: 065

REACTIONS (9)
  - Myalgia [Unknown]
  - Oral herpes [Unknown]
  - Alopecia [Unknown]
  - Pain [Unknown]
  - Herpes zoster [Unknown]
  - Tendon pain [Unknown]
  - Rash [Unknown]
  - Peripheral swelling [Unknown]
  - Multiple sclerosis relapse [Unknown]
